FAERS Safety Report 5594126-7 (Version None)
Quarter: 2008Q1

REPORT INFORMATION
  Report Type: 
  Country: None (occurrence: None)
  Receive Date: 20080115
  Receipt Date: 20080104
  Transmission Date: 20080703
  Serious: Yes (Hospitalization, Other)
  Sender: FDA-Public Use
  Company Number: JPI-P-002137

PATIENT
  Age: 62 Year
  Sex: Female
  Weight: 61.2356 kg

DRUGS (17)
  1. XYREM [Suspect]
     Indication: NARCOLEPSY
     Dosage: SEE IMAGE
     Route: 048
     Dates: start: 20070725, end: 20070101
  2. XYREM [Suspect]
     Indication: NARCOLEPSY
     Dosage: SEE IMAGE
     Route: 048
     Dates: start: 20070101, end: 20071119
  3. XYREM [Suspect]
     Indication: NARCOLEPSY
     Dosage: SEE IMAGE
     Route: 048
     Dates: start: 20071227, end: 20071227
  4. OMEPRAZOLE [Concomitant]
  5. DOMEPERIDONE (DOMPERIDONE) [Concomitant]
  6. ATORVASTATIN CALCIUM [Concomitant]
  7. TRAZODONE HCL [Concomitant]
  8. POLYETHYLENE GLYCOL (MACROGOL) [Concomitant]
  9. CALCIUM CARBONATE (CALCIUM CARBONATE) [Concomitant]
  10. HYDROCODONE BITARTRATE AND ACETAMINOPHEN (VICODIN) [Concomitant]
  11. PHENERGAN [Concomitant]
  12. DICYCLOMINE [Concomitant]
  13. PROCHLORPERAZINE (PROCHLOPERAZINE) [Concomitant]
  14. BUTALBITAL, ACETAMINOPHEN AND CAFFEINE(AXOTAL /00727001/) [Concomitant]
  15. LIDOCAINE PATCH (LIDOCAINE HYDROCHLORIDE) (PULTICE OR PATCH) [Concomitant]
  16. VITAMIN D [Concomitant]
  17. FLUOXETINE HCL [Concomitant]

REACTIONS (7)
  - DRY EYE [None]
  - DRY MOUTH [None]
  - EYELID PTOSIS [None]
  - POLLAKIURIA [None]
  - URINE FLOW DECREASED [None]
  - VISUAL DISTURBANCE [None]
  - VISUAL FIELD DEFECT [None]
